FAERS Safety Report 19173197 (Version 1)
Quarter: 2021Q2

REPORT INFORMATION
  Report Type: Spontaneous
  Country: US (occurrence: US)
  Receive Date: 20210422
  Receipt Date: 20210422
  Transmission Date: 20210717
  Serious: Yes (Disabling)
  Sender: FDA-Public Use
  Company Number: None

PATIENT
  Age: 14 Year
  Sex: Male
  Weight: 112.5 kg

DRUGS (6)
  1. PALIPERDONE [Suspect]
     Active Substance: PALIPERIDONE
     Indication: AUTISM SPECTRUM DISORDER
     Dosage: ?          QUANTITY:1 TABLET(S);?
     Route: 048
     Dates: end: 20210408
  2. INTUIV [Concomitant]
  3. ASHWAGANDA [Concomitant]
     Active Substance: HERBALS
  4. DEXILANT [Concomitant]
     Active Substance: DEXLANSOPRAZOLE
  5. MULTI [Concomitant]
  6. VITAMIN D [Concomitant]
     Active Substance: VITAMIN D NOS

REACTIONS (2)
  - Incontinence [None]
  - Muscle twitching [None]

NARRATIVE: CASE EVENT DATE: 20210318
